FAERS Safety Report 16588322 (Version 1)
Quarter: 2019Q3

REPORT INFORMATION
  Report Type: Spontaneous
  Country: US (occurrence: US)
  Receive Date: 20190717
  Receipt Date: 20190717
  Transmission Date: 20191004
  Serious: No
  Sender: FDA-Public Use
  Company Number: US-JIANGSU HENGRUI MEDICINE CO., LTD.-2070969

PATIENT

DRUGS (4)
  1. CELECOXIB. [Suspect]
     Active Substance: CELECOXIB
  2. ETOPOSIDE. [Suspect]
     Active Substance: ETOPOSIDE
  3. CYCLOPHOSPHAMIDE FOR INJECTION USP, 500 MG, 1 G AND 2 G PER SINGLE-DOS [Suspect]
     Active Substance: CYCLOPHOSPHAMIDE
     Indication: GLIOBLASTOMA
  4. SIROLIMUS. [Suspect]
     Active Substance: SIROLIMUS

REACTIONS (2)
  - Headache [Unknown]
  - Neoplasm progression [Not Recovered/Not Resolved]
